FAERS Safety Report 15446021 (Version 1)
Quarter: 2018Q3

REPORT INFORMATION
  Report Type: Spontaneous
  Country: US (occurrence: US)
  Receive Date: 20180928
  Receipt Date: 20180928
  Transmission Date: 20181010
  Serious: No
  Sender: FDA-Public Use
  Company Number: US-AMGEN-USASP2018047605

PATIENT
  Age: 76 Year
  Sex: Female

DRUGS (3)
  1. COLCHICINE. [Concomitant]
     Active Substance: COLCHICINE
     Indication: PAIN
     Dosage: 0.6 UNK, UNK
     Dates: start: 2017
  2. PROLIA [Suspect]
     Active Substance: DENOSUMAB
     Indication: OSTEOPOROSIS POSTMENOPAUSAL
     Dosage: 60 MG, Q6MO
     Route: 065
     Dates: start: 201801
  3. ALLOPURINOL. [Concomitant]
     Active Substance: ALLOPURINOL
     Indication: CHONDROCALCINOSIS PYROPHOSPHATE
     Dosage: 300 MG, QD
     Dates: start: 2017

REACTIONS (2)
  - Sleep disorder due to a general medical condition [Unknown]
  - Chondrocalcinosis pyrophosphate [Not Recovered/Not Resolved]

NARRATIVE: CASE EVENT DATE: 2018
